FAERS Safety Report 25057076 (Version 7)
Quarter: 2025Q4

REPORT INFORMATION
  Report Type: Report from Study
  Country: US (occurrence: US)
  Receive Date: 20250310
  Receipt Date: 20251028
  Transmission Date: 20260118
  Serious: No
  Sender: MERCK SHARP & DOHME LLC
  Company Number: US-009507513-2255655

PATIENT
  Sex: Female
  Weight: 65.9 kg

DRUGS (33)
  1. WINREVAIR [Suspect]
     Active Substance: SOTATERCEPT-CSRK
     Indication: Pulmonary arterial hypertension
     Dates: start: 20250204
  2. WINREVAIR [Suspect]
     Active Substance: SOTATERCEPT-CSRK
     Route: 058
  3. WINREVAIR [Suspect]
     Active Substance: SOTATERCEPT-CSRK
  4. WINREVAIR [Suspect]
     Active Substance: SOTATERCEPT-CSRK
  5. HYDRALAZINE HCL [Concomitant]
     Active Substance: HYDRALAZINE HYDROCHLORIDE
  6. SILDENAFIL [Concomitant]
     Active Substance: SILDENAFIL
  7. MORPHINE SULFATE [Concomitant]
     Active Substance: MORPHINE SULFATE
  8. OPSUMIT [Concomitant]
     Active Substance: MACITENTAN
  9. DIFLUCAN [Concomitant]
     Active Substance: FLUCONAZOLE
  10. PREGABALIN [Concomitant]
     Active Substance: PREGABALIN
  11. LINEZOLID [Concomitant]
     Active Substance: LINEZOLID
  12. PREDNISONE [Concomitant]
     Active Substance: PREDNISONE
  13. OXYGEN [Concomitant]
     Active Substance: OXYGEN
  14. TUMS [Concomitant]
     Active Substance: CALCIUM CARBONATE
  15. VITAMIN D3 [Concomitant]
     Active Substance: CHOLECALCIFEROL
  16. PAROXETINE HYDROCHLORIDE [Concomitant]
     Active Substance: PAROXETINE HYDROCHLORIDE
  17. CETIRIZINE HCL [Concomitant]
     Active Substance: CETIRIZINE HYDROCHLORIDE
  18. CYCLOBENZAPRINE HYDROCHLORIDE [Concomitant]
     Active Substance: CYCLOBENZAPRINE HYDROCHLORIDE
  19. FERROUS SULFATE [Concomitant]
     Active Substance: FERROUS SULFATE
  20. AZITHROMYCIN [Concomitant]
     Active Substance: AZITHROMYCIN
  21. FUROSEMIDE [Concomitant]
     Active Substance: FUROSEMIDE
  22. FAMOTIDINE [Concomitant]
     Active Substance: FAMOTIDINE
  23. ENOXAPARIN SODIUM [Concomitant]
     Active Substance: ENOXAPARIN SODIUM
  24. POTASSIUM CHLORIDE [Concomitant]
     Active Substance: POTASSIUM CHLORIDE
  25. VENTOLIN HFA [Concomitant]
     Active Substance: ALBUTEROL SULFATE
  26. MUPIROCIN [Concomitant]
     Active Substance: MUPIROCIN
  27. REMODULIN [Suspect]
     Active Substance: TREPROSTINIL
     Indication: Pulmonary arterial hypertension
     Dosage: 0.088 UG/KG; CONTINUOUS, STRENGTH 5.0 MG/ML
     Route: 041
     Dates: start: 20220413
  28. REMODULIN [Suspect]
     Active Substance: TREPROSTINIL
     Indication: Pulmonary arterial hypertension
     Dosage: 0.086 UG/KG CONTINUOUS
     Route: 042
     Dates: start: 20220413
  29. OXYCODONE HYDROCHLORIDE [Concomitant]
     Active Substance: OXYCODONE HYDROCHLORIDE
     Indication: Pain in extremity
  30. IBUPROFEN [Concomitant]
     Active Substance: IBUPROFEN
     Indication: Pain in extremity
  31. TRIAMCINOLONE ACETONIDE [Concomitant]
     Active Substance: TRIAMCINOLONE ACETONIDE
  32. BENADRYL [Concomitant]
     Active Substance: DIPHENHYDRAMINE HYDROCHLORIDE
  33. UPTRAVI [Suspect]
     Active Substance: SELEXIPAG

REACTIONS (10)
  - Peripheral swelling [Recovered/Resolved]
  - Pain in extremity [Not Recovered/Not Resolved]
  - Headache [Not Recovered/Not Resolved]
  - Arthritis [Unknown]
  - Gout [Unknown]
  - Blood uric acid increased [Recovering/Resolving]
  - Rash pruritic [Recovered/Resolved]
  - Dizziness [Unknown]
  - Diarrhoea [Unknown]
  - Intentional product misuse [Unknown]

NARRATIVE: CASE EVENT DATE: 20250101
